FAERS Safety Report 8987395 (Version 2)
Quarter: 2013Q3

REPORT INFORMATION
  Report Type: Report from Study
  Country: AR (occurrence: AR)
  Receive Date: 20121226
  Receipt Date: 20130903
  Transmission Date: 20140515
  Serious: Yes (Other)
  Sender: FDA-Public Use
  Company Number: AR-ROCHE-1173864

PATIENT
  Age: 77 Year
  Sex: Female

DRUGS (1)
  1. RANIBIZUMAB [Suspect]
     Indication: MACULOPATHY
     Dosage: ONE EVERY FIFTEEN OR TWENTY DAY
     Route: 042
     Dates: start: 2010

REACTIONS (5)
  - Maculopathy [Recovering/Resolving]
  - Disease progression [Recovering/Resolving]
  - Blindness [Recovering/Resolving]
  - Inappropriate schedule of drug administration [Unknown]
  - Visual field defect [Recovering/Resolving]
